FAERS Safety Report 20263521 (Version 1)
Quarter: 2021Q4

REPORT INFORMATION
  Report Type: Spontaneous
  Country: JP (occurrence: JP)
  Receive Date: 20211231
  Receipt Date: 20211231
  Transmission Date: 20220303
  Serious: Yes (Hospitalization)
  Sender: FDA-Public Use
  Company Number: JP-SA-SAC20211229000259

PATIENT
  Age: 63 Year
  Sex: Male
  Weight: 59.9 kg

DRUGS (8)
  1. OXALIPLATIN [Suspect]
     Active Substance: OXALIPLATIN
     Indication: Rectal cancer
     Dosage: 120 MG
     Dates: start: 20190529, end: 20211202
  2. PALONOSETRON HYDROCHLORIDE [Concomitant]
     Active Substance: PALONOSETRON HYDROCHLORIDE
     Dosage: UNK
     Dates: start: 20190529
  3. PANITUMUMAB [Concomitant]
     Active Substance: PANITUMUMAB
  4. FLUOROURACIL [Concomitant]
     Active Substance: FLUOROURACIL
     Dosage: UNK
     Dates: start: 20211102
  5. LEVOLEUCOVORIN CALCIUM [Concomitant]
     Active Substance: LEVOLEUCOVORIN CALCIUM
     Dosage: UNK
     Dates: start: 20211102
  6. ETIZOLAM [Concomitant]
     Active Substance: ETIZOLAM
     Dosage: UNK
     Dates: start: 20211202
  7. APREPITANT [Concomitant]
     Active Substance: APREPITANT
     Dosage: UNK
     Dates: start: 20190529
  8. CAPECITABINE [Concomitant]
     Active Substance: CAPECITABINE
     Dosage: UNK
     Dates: start: 20190529

REACTIONS (1)
  - Anaphylactic reaction [Recovered/Resolved]

NARRATIVE: CASE EVENT DATE: 20211202
